FAERS Safety Report 9056082 (Version 1)
Quarter: 2013Q1

REPORT INFORMATION
  Report Type: Spontaneous
  Country: FR (occurrence: FR)
  Receive Date: 20130205
  Receipt Date: 20130205
  Transmission Date: 20140127
  Serious: Yes (Other)
  Sender: FDA-Public Use
  Company Number: PHHY2013FR009261

PATIENT
  Age: 88 Year
  Sex: Female

DRUGS (4)
  1. TASIGNA [Suspect]
     Indication: CHRONIC MYELOID LEUKAEMIA
     Dosage: 3 DF, QD
     Route: 048
     Dates: start: 20080227, end: 20090930
  2. TASIGNA [Suspect]
     Dosage: 2 DF, QD
     Dates: start: 20090930
  3. EBIXA [Concomitant]
     Dosage: 1 DF, QD
     Route: 048
     Dates: start: 20121020
  4. EBIXA [Concomitant]
     Dosage: 1 DF IN THE EVENING
     Route: 048

REACTIONS (2)
  - Cognitive disorder [Not Recovered/Not Resolved]
  - Confusional state [Not Recovered/Not Resolved]
